FAERS Safety Report 11337573 (Version 1)
Quarter: 2015Q3

REPORT INFORMATION
  Report Type: Spontaneous
  Country: US (occurrence: US)
  Receive Date: 20150803
  Receipt Date: 20150803
  Transmission Date: 20151125
  Serious: No
  Sender: FDA-Public Use
  Company Number: US-ELI_LILLY_AND_COMPANY-US200909001552

PATIENT
  Age: 44 Year
  Sex: Female

DRUGS (11)
  1. HALDOL [Concomitant]
     Active Substance: HALOPERIDOL
     Dosage: 8 MG, EACH EVENING
  2. IRON [Concomitant]
     Active Substance: IRON
  3. VITAMIN D [Concomitant]
     Active Substance: CHOLECALCIFEROL
  4. MIRALAX [Concomitant]
     Active Substance: POLYETHYLENE GLYCOL 3350
  5. LITHIUM. [Concomitant]
     Active Substance: LITHIUM
  6. ZYPREXA [Suspect]
     Active Substance: OLANZAPINE
     Dosage: 15 MG, EACH MORNING
  7. CLARITIN [Concomitant]
     Active Substance: LORATADINE
  8. COGENTIN [Concomitant]
     Active Substance: BENZTROPINE MESYLATE
  9. HALDOL [Concomitant]
     Active Substance: HALOPERIDOL
     Dosage: 2 MG, EACH MORNING
  10. ZYPREXA [Suspect]
     Active Substance: OLANZAPINE
     Dosage: 25 MG, EACH EVENING
  11. PRILOSEC [Concomitant]
     Active Substance: OMEPRAZOLE MAGNESIUM

REACTIONS (3)
  - HIV test positive [Unknown]
  - Blood glucose increased [Unknown]
  - Prescribed overdose [Not Recovered/Not Resolved]

NARRATIVE: CASE EVENT DATE: 20090817
